FAERS Safety Report 21451927 (Version 1)
Quarter: 2022Q4

REPORT INFORMATION
  Report Type: Spontaneous
  Country: US (occurrence: US)
  Receive Date: 20221013
  Receipt Date: 20221013
  Transmission Date: 20230113
  Serious: No
  Sender: FDA-Public Use
  Company Number: US-BAYER-2022A135863

PATIENT
  Age: 77 Year
  Sex: Male

DRUGS (2)
  1. ALEVE [Suspect]
     Active Substance: NAPROXEN SODIUM
     Indication: Pain
     Dosage: UNK
  2. BARIVIT C [Concomitant]
     Dosage: UNK
     Dates: start: 20220911

REACTIONS (2)
  - Neck pain [Unknown]
  - Drug ineffective [Unknown]
